FAERS Safety Report 10066541 (Version 2)
Quarter: 2014Q2

REPORT INFORMATION
  Report Type: Spontaneous
  Country: GB (occurrence: GB)
  Receive Date: 20140408
  Receipt Date: 20140506
  Transmission Date: 20141212
  Serious: Yes (Hospitalization, Disabling)
  Sender: FDA-Public Use
  Company Number: GB-GE HEALTHCARE MEDICAL DIAGNOSTICS-OMPQ-PR-1403S-0347

PATIENT
  Age: 65 Year
  Sex: Female

DRUGS (4)
  1. OMNIPAQUE [Suspect]
     Indication: GASTROINTESTINAL CARCINOMA
     Route: 048
  2. OMNIPAQUE [Suspect]
     Indication: THERAPEUTIC PROCEDURE
  3. BUSCOPAN [Suspect]
     Indication: COLECTOMY
     Route: 042
     Dates: start: 20140217
  4. BUSCOPAN [Suspect]
     Indication: IRRITABLE BOWEL SYNDROME
     Route: 048

REACTIONS (10)
  - Gastrointestinal carcinoma [Recovered/Resolved]
  - Chest pain [Unknown]
  - Heart rate irregular [Unknown]
  - Fall [Unknown]
  - Rectal haemorrhage [Unknown]
  - Malaise [Unknown]
  - Eye pain [Unknown]
  - Abdominal pain [Unknown]
  - Diarrhoea [Unknown]
  - Headache [Unknown]
